FAERS Safety Report 8068732-4 (Version None)
Quarter: 2012Q1

REPORT INFORMATION
  Report Type: 
  Country: None (occurrence: None)
  Receive Date: 20120124
  Receipt Date: 20111121
  Transmission Date: 20120608
  Serious: No
  Sender: FDA-Public Use
  Company Number: US-AMGEN-USASP2011061401

PATIENT
  Sex: Female

DRUGS (9)
  1. HYDROCHLOROTHIAZIDE [Concomitant]
  2. PROLIA [Suspect]
     Indication: OSTEOPOROSIS POSTMENOPAUSAL
     Dosage: UNK
  3. SYNTHROID [Concomitant]
     Dosage: UNK
  4. CYTOMEL [Concomitant]
     Dosage: UNK
  5. SPIRIVA [Concomitant]
  6. VITAMINS                           /00067501/ [Concomitant]
  7. VITAMIN D [Concomitant]
  8. TUMS                               /00193601/ [Concomitant]
     Dosage: UNK
  9. TRIAMTERENE [Concomitant]
     Dosage: UNK

REACTIONS (1)
  - LOW DENSITY LIPOPROTEIN INCREASED [None]
